FAERS Safety Report 9167993 (Version 1)
Quarter: 2013Q1

REPORT INFORMATION
  Report Type: Spontaneous
  Country: CA (occurrence: None)
  Receive Date: 20130307
  Receipt Date: 20130307
  Transmission Date: 20140127
  Serious: Yes (Other)
  Sender: FDA-Public Use
  Company Number: ABR_00849_2013

PATIENT
  Age: 87 Year
  Sex: Female

DRUGS (1)
  1. RHO-NITRO [Suspect]
     Route: 060

REACTIONS (3)
  - Increased upper airway secretion [None]
  - Dyspnoea [None]
  - Pharyngeal oedema [None]
